FAERS Safety Report 8064130-8 (Version None)
Quarter: 2012Q1

REPORT INFORMATION
  Report Type: 
  Country: None (occurrence: None)
  Receive Date: 20120123
  Receipt Date: 20120112
  Transmission Date: 20120608
  Serious: Yes (Hospitalization)
  Sender: FDA-Public Use
  Company Number: ES-GLAXOSMITHKLINE-B0769516B

PATIENT
  Sex: Female
  Weight: 46 kg

DRUGS (7)
  1. INSULIN [Suspect]
     Indication: CUSHING'S SYNDROME
     Dosage: 10IU PER DAY
     Route: 058
     Dates: start: 20101001
  2. METYRAPONE [Concomitant]
     Indication: CUSHING'S SYNDROME
     Dosage: 500MG THREE TIMES PER DAY
     Route: 048
     Dates: start: 20101001
  3. SPIRONOLACTONE [Concomitant]
     Indication: CUSHING'S SYNDROME
     Dosage: 100MG PER DAY
     Route: 048
     Dates: start: 20101001
  4. PAZOPANIB [Suspect]
     Indication: NEUROENDOCRINE TUMOUR
     Dosage: 400MG TWICE PER DAY
     Route: 048
     Dates: start: 20111123
  5. LEVOTHYROXINE SODIUM [Concomitant]
     Indication: HYPOTHYROIDISM
     Dosage: 25MCG TWICE PER DAY
     Route: 048
     Dates: start: 20101001
  6. KETOCONAZOLE [Concomitant]
     Indication: CUSHING'S SYNDROME
     Route: 048
     Dates: start: 20101001
  7. FUROSEMIDE [Concomitant]
     Indication: CUSHING'S SYNDROME
     Dosage: 40MG TWICE PER DAY
     Route: 048
     Dates: start: 20101001

REACTIONS (1)
  - HYPOGLYCAEMIC COMA [None]
